FAERS Safety Report 9405779 (Version 3)
Quarter: 2013Q3

REPORT INFORMATION
  Report Type: Spontaneous
  Country: US (occurrence: US)
  Receive Date: 20130717
  Receipt Date: 20130821
  Transmission Date: 20140515
  Serious: Yes (Hospitalization)
  Sender: FDA-Public Use
  Company Number: US-GLAXOSMITHKLINE-A1001487A

PATIENT
  Age: 65 Year
  Sex: Female
  Weight: 107.3 kg

DRUGS (1)
  1. AVANDAMET [Suspect]
     Indication: DIABETES MELLITUS
     Route: 048
     Dates: start: 200802, end: 200806

REACTIONS (4)
  - Cardiac failure congestive [Recovering/Resolving]
  - Angina pectoris [Unknown]
  - Dyspnoea [Unknown]
  - Dyspnoea [Unknown]
